FAERS Safety Report 8920693 (Version 1)
Quarter: 2012Q4

REPORT INFORMATION
  Report Type: Report from Study
  Country: US (occurrence: US)
  Receive Date: 20121121
  Receipt Date: 20121121
  Transmission Date: 20130627
  Serious: Yes (Hospitalization)
  Sender: FDA-Public Use
  Company Number: US-ABBOTT-12P-163-1008950-00

PATIENT
  Age: 29 None
  Sex: Female
  Weight: 61.29 kg

DRUGS (7)
  1. HUMIRA [Suspect]
     Indication: CROHN^S DISEASE
     Route: 058
     Dates: start: 201112, end: 201208
  2. HUMIRA [Suspect]
     Route: 058
     Dates: start: 20121114
  3. SEROQUEL [Concomitant]
     Indication: BIPOLAR DISORDER
     Dates: start: 201208
  4. DEPAKOTE [Concomitant]
     Indication: BIPOLAR DISORDER
     Dates: start: 201208
  5. WELLBUTRIN [Concomitant]
     Indication: DEPRESSION
     Dates: start: 201208
  6. PAXIL [Concomitant]
     Indication: DEPRESSION
     Dates: start: 201208
  7. XANAX [Concomitant]
     Indication: ANXIETY
     Dates: start: 201208

REACTIONS (10)
  - Fatigue [Unknown]
  - Abdominal pain [Unknown]
  - Nausea [Unknown]
  - Malaise [Unknown]
  - Crohn^s disease [Not Recovered/Not Resolved]
  - Abdominal pain [Not Recovered/Not Resolved]
  - Nausea [Not Recovered/Not Resolved]
  - Fatigue [Not Recovered/Not Resolved]
  - Malaise [Not Recovered/Not Resolved]
  - Crohn^s disease [Not Recovered/Not Resolved]
